FAERS Safety Report 9169707 (Version 1)
Quarter: 2013Q1

REPORT INFORMATION
  Report Type: Spontaneous
  Country: DK (occurrence: DK)
  Receive Date: 20130318
  Receipt Date: 20130318
  Transmission Date: 20140127
  Serious: Yes (Other)
  Sender: FDA-Public Use
  Company Number: PHHY2013DK024390

PATIENT
  Age: 55 Year
  Sex: Female

DRUGS (2)
  1. ALPRAZOLAM [Suspect]
     Indication: ANXIETY
     Dosage: 0.25 MG, 1X/DAY
     Dates: start: 2008, end: 201302
  2. ALPRAZOLAM [Suspect]
     Dosage: 0.5 MG, 1X/DAY
     Dates: start: 201302

REACTIONS (4)
  - Breast cancer female [Unknown]
  - Malaise [Unknown]
  - Tremor [Unknown]
  - Gait disturbance [Unknown]
